FAERS Safety Report 10998227 (Version 1)
Quarter: 2015Q2

REPORT INFORMATION
  Report Type: Spontaneous
  Country: US (occurrence: None)
  Receive Date: 20150407
  Receipt Date: 20150407
  Transmission Date: 20150821
  Serious: Yes (Hospitalization)
  Sender: FDA-Public Use
  Company Number: None

PATIENT
  Age: 54 Year
  Sex: Male
  Weight: 81.65 kg

DRUGS (2)
  1. LOVAZA [Concomitant]
     Active Substance: OMEGA-3-ACID ETHYL ESTERS
  2. LIPITOR [Suspect]
     Active Substance: ATORVASTATIN CALCIUM
     Indication: BLOOD TRIGLYCERIDES INCREASED
     Dates: start: 20120928, end: 20121214

REACTIONS (4)
  - Dizziness [None]
  - Impaired driving ability [None]
  - Blood triglycerides increased [None]
  - Malaise [None]

NARRATIVE: CASE EVENT DATE: 20121213
